FAERS Safety Report 5923915-1 (Version None)
Quarter: 2008Q4

REPORT INFORMATION
  Report Type: 
  Country: None (occurrence: None)
  Receive Date: 20081020
  Receipt Date: 20081013
  Transmission Date: 20090506
  Serious: Yes (Hospitalization, Other)
  Sender: FDA-Public Use
  Company Number: US-ELI_LILLY_AND_COMPANY-US200810003299

PATIENT
  Sex: Female

DRUGS (3)
  1. HUMALOG [Suspect]
  2. HUMALOG [Suspect]
  3. IRON [Concomitant]
     Indication: ANAEMIA

REACTIONS (19)
  - ADVERSE DRUG REACTION [None]
  - ANAEMIA [None]
  - BENIGN OVARIAN TUMOUR [None]
  - BILIARY NEOPLASM [None]
  - BLADDER CANCER [None]
  - BLOOD POTASSIUM INCREASED [None]
  - BLOOD URIC ACID INCREASED [None]
  - CHOLELITHIASIS [None]
  - CONSTIPATION [None]
  - DIVERTICULITIS [None]
  - HERNIA [None]
  - HOSPITALISATION [None]
  - INCISION SITE COMPLICATION [None]
  - INJECTION SITE DISCHARGE [None]
  - LIMB OPERATION [None]
  - NEPHROLITHIASIS [None]
  - RENAL FAILURE [None]
  - WOUND DEHISCENCE [None]
  - WOUND INFECTION [None]
